FAERS Safety Report 5005116-7 (Version None)
Quarter: 2006Q2

REPORT INFORMATION
  Report Type: 
  Country: None (occurrence: None)
  Receive Date: 20060512
  Receipt Date: 20060505
  Transmission Date: 20061013
  Serious: Yes (Life-Threatening, Hospitalization, Other)
  Sender: FDA-Public Use
  Company Number: 2006024908

PATIENT
  Age: 71 Year
  Sex: Female

DRUGS (4)
  1. PREGABALIN (PREGABALIN) [Suspect]
     Indication: GUILLAIN-BARRE SYNDROME
     Dosage: 75 MG (75 MG, 1 IN 1 D) ORAL
     Route: 048
     Dates: start: 20060116, end: 20060205
  2. DICLOFENAC SODIUM [Suspect]
     Indication: ILL-DEFINED DISORDER
     Dosage: ORAL
     Route: 048
     Dates: start: 20060101
  3. IMMUNE GLOBULIN INTRAVENOUS (HUMAN) [Concomitant]
  4. MORPHINE [Concomitant]

REACTIONS (5)
  - ATRIAL FIBRILLATION [None]
  - CONDITION AGGRAVATED [None]
  - GUILLAIN-BARRE SYNDROME [None]
  - RENAL FAILURE ACUTE [None]
  - RESPIRATORY TRACT INFECTION [None]
